FAERS Safety Report 20255231 (Version 3)
Quarter: 2024Q2

REPORT INFORMATION
  Report Type: Report from Study
  Country: SE (occurrence: SE)
  Receive Date: 20211230
  Receipt Date: 20240530
  Transmission Date: 20240716
  Serious: Yes (Hospitalization, Other)
  Sender: FDA-Public Use
  Company Number: SE-BAXTER-2021BAX042024

PATIENT
  Age: 74 Year
  Sex: Male
  Weight: 100 kg

DRUGS (28)
  1. CYCLOPHOSPHAMIDE [Suspect]
     Active Substance: CYCLOPHOSPHAMIDE
     Indication: Diffuse large B-cell lymphoma stage IV
     Dosage: 750 MG/M2,EVERY 3 WK,C1D1-ONWARDS, ONGOING, DOSAGE FORM: POWDER FOR SOLUTION FOR INJECTION, AS PART
     Route: 042
     Dates: start: 20210419
  2. DOXORUBICIN [Suspect]
     Active Substance: DOXORUBICIN
     Indication: Diffuse large B-cell lymphoma stage IV
     Dosage: 50 MG/M2,EVERY 3 WK,C1D1-ONWARDS, ONGOING, DOSAGE FORM: SOLUTION FOR INFUSION, AS PART OF THE CHOP
     Route: 042
     Dates: start: 20210419
  3. RITUXIMAB [Suspect]
     Active Substance: RITUXIMAB
     Indication: Diffuse large B-cell lymphoma stage IV
     Dosage: 375 MG/M2, EVERY 3 WK, C1D1-ONWARDS, ONGOING
     Route: 042
     Dates: start: 20210419
  4. EPCORITAMAB [Suspect]
     Active Substance: EPCORITAMAB
     Indication: Diffuse large B-cell lymphoma stage IV
     Dosage: 0.16 MG, C1DI, AT 16:18 HRS (DUOBODY CD3XCD20)
     Route: 058
     Dates: start: 20210419, end: 20210419
  5. EPCORITAMAB [Suspect]
     Active Substance: EPCORITAMAB
     Dosage: 0.8 MG, INTERMEDIATE DOSE
     Route: 065
     Dates: start: 20210426
  6. VINCRISTINE [Suspect]
     Active Substance: VINCRISTINE
     Indication: Diffuse large B-cell lymphoma stage IV
     Dosage: 1.4 MG/M2,EVERY 3 WK,C1D1-ONWARDS, ONGOING, AS PART OF THE CHOP
     Route: 042
     Dates: start: 20210419
  7. PREDNISONE [Suspect]
     Active Substance: PREDNISONE
     Indication: Diffuse large B-cell lymphoma stage IV
     Dosage: 100 MG, SINGLE, PM, C1D1-ONWARDS, CYCLE 1
     Route: 048
     Dates: start: 20210419, end: 20210423
  8. OMEPRAZOLE [Concomitant]
     Active Substance: DONEPEZIL HYDROCHLORIDE\OMEPRAZOLE\OMEPRAZOLE MAGNESIUM
     Dosage: PRN
     Route: 065
     Dates: start: 20210419, end: 20220107
  9. DESLORATADINE [Concomitant]
     Active Substance: DESLORATADINE
     Dosage: 10 MILLIGRAM,PRN
     Route: 048
     Dates: start: 20210419, end: 20210419
  10. ACETAMINOPHEN [Concomitant]
     Active Substance: ACETAMINOPHEN
     Dosage: 1000 MILLIGRAM,PRN
     Route: 048
     Dates: start: 20210419, end: 20210419
  11. ALLOPURINOL [Concomitant]
     Active Substance: ALLOPURINOL
     Dosage: PRN
     Route: 065
     Dates: start: 20210412, end: 20210831
  12. BUDESONIDE\FORMOTEROL FUMARATE [Concomitant]
     Active Substance: BUDESONIDE\FORMOTEROL FUMARATE
     Dosage: PRN
     Route: 065
     Dates: start: 20210323, end: 20211216
  13. ENTECAVIR [Concomitant]
     Active Substance: ENTECAVIR
     Dosage: PRN
     Route: 065
     Dates: start: 20210415, end: 20220107
  14. FELODIPINE [Concomitant]
     Active Substance: FELODIPINE
     Dosage: PRN
     Route: 065
     Dates: start: 20180430, end: 20210421
  15. ONDANSETRON [Concomitant]
     Active Substance: ONDANSETRON
     Dosage: PRN
     Route: 065
     Dates: start: 20210412, end: 20210608
  16. PRIMPERAN [Concomitant]
     Active Substance: METOCLOPRAMIDE HYDROCHLORIDE
     Dosage: PRN
     Route: 065
     Dates: start: 20210412, end: 20210503
  17. SIMVASTATIN [Concomitant]
     Active Substance: SIMVASTATIN
     Dosage: PRN, ONGOING
     Route: 065
     Dates: start: 20181016
  18. SPIRIVA [Concomitant]
     Active Substance: TIOTROPIUM BROMIDE MONOHYDRATE
     Dosage: PRN
     Route: 065
     Dates: start: 20180430, end: 20211216
  19. TARGINIQ ER [Concomitant]
     Active Substance: NALOXONE HYDROCHLORIDE\OXYCODONE HYDROCHLORIDE
     Dosage: PRN
     Route: 065
     Dates: start: 20210212, end: 20210518
  20. VALACYCLOVIR HYDROCHLORIDE [Concomitant]
     Active Substance: VALACYCLOVIR HYDROCHLORIDE
     Dosage: PRN
     Route: 065
     Dates: start: 20210412, end: 20220107
  21. ALFUZOSIN [Concomitant]
     Active Substance: ALFUZOSIN
     Dosage: UNK PRN, START DATE: 2019, ONGOING
     Route: 065
  22. INDERAL [Concomitant]
     Active Substance: PROPRANOLOL HYDROCHLORIDE
     Dosage: UNK PRN, ONGOING
     Route: 065
     Dates: start: 20190812
  23. PREDNISONE [Concomitant]
     Active Substance: PREDNISONE
     Indication: Prophylaxis
     Dosage: 100 MG (50 MG X 2, QD)
     Route: 048
     Dates: start: 20210419, end: 20210423
  24. BACTRIM [Concomitant]
     Active Substance: SULFAMETHOXAZOLE\TRIMETHOPRIM
     Dosage: UNK PRN
     Route: 065
     Dates: start: 20210412, end: 20210426
  25. BETAMETHASONE [Concomitant]
     Active Substance: BETAMETHASONE\BETAMETHASONE DIPROPIONATE
     Dosage: UNK PRN
     Route: 065
     Dates: start: 20200318, end: 20210421
  26. ASPIRIN [Concomitant]
     Active Substance: ASPIRIN
     Dosage: UNK PRN
     Route: 065
     Dates: start: 20180430, end: 20210426
  27. FILGRASTIM [Concomitant]
     Active Substance: FILGRASTIM
     Dosage: UNK PRN
     Route: 065
     Dates: start: 20210412, end: 20211022
  28. ZOLPIDEM [Concomitant]
     Active Substance: ZOLPIDEM TARTRATE
     Dosage: UNK PRN
     Route: 065
     Dates: start: 20210418, end: 20220107

REACTIONS (3)
  - Cytokine release syndrome [Recovered/Resolved]
  - Hypoxia [Recovered/Resolved]
  - Hypotension [Recovered/Resolved]

NARRATIVE: CASE EVENT DATE: 20210419
